FAERS Safety Report 9371874 (Version 1)
Quarter: 2013Q2

REPORT INFORMATION
  Report Type: Spontaneous
  Country: MX (occurrence: None)
  Receive Date: 20130618
  Receipt Date: 20130618
  Transmission Date: 20140414
  Serious: Yes (Other)
  Sender: FDA-Public Use
  Company Number: 2013036484

PATIENT
  Age: 58 Year
  Sex: Female

DRUGS (3)
  1. IVIG (IMMUNE GLOBULIN INTRAVENOUS (HUMAN) 10% LIQUID) [Suspect]
     Indication: DRUG INEFFECTIVE FOR UNAPPROVED INDICATION
     Dosage: 30 G TOTAL
  2. HYDROCORTISONE (HYDROCORTISONE) [Concomitant]
  3. RITUXIMAB (RITUXIMAB) [Concomitant]

REACTIONS (1)
  - Drug ineffective for unapproved indication [None]
